FAERS Safety Report 6133162-9 (Version None)
Quarter: 2009Q1

REPORT INFORMATION
  Report Type: 
  Country: None (occurrence: None)
  Receive Date: 20090324
  Receipt Date: 20090311
  Transmission Date: 20090719
  Serious: Yes (Death)
  Sender: FDA-Public Use
  Company Number: 2009S1004335

PATIENT
  Sex: Female

DRUGS (2)
  1. FENTANYL TRANSDERMAL SYSTEM [Suspect]
     Indication: PAIN
     Dosage: 75 MG;EVERY HOUR;TRANSDERMAL
     Route: 062
  2. FENTANYL TRANSDERMAL SYSTEM [Suspect]
     Indication: PAIN
     Dosage: 100 MG;EVERY HOUR;TRANSDERMAL
     Route: 062

REACTIONS (2)
  - RESPIRATORY ARREST [None]
  - THERAPEUTIC AGENT TOXICITY [None]
